FAERS Safety Report 14309939 (Version 1)
Quarter: 2017Q4

REPORT INFORMATION
  Report Type: Spontaneous
  Country: US (occurrence: US)
  Receive Date: 20171220
  Receipt Date: 20171220
  Transmission Date: 20180321
  Serious: No
  Sender: FDA-Public Use
  Company Number: US-ELI_LILLY_AND_COMPANY-US201712003693

PATIENT
  Sex: Male

DRUGS (1)
  1. ERBITUX [Suspect]
     Active Substance: CETUXIMAB
     Indication: COLON CANCER
     Dosage: UNK, UNKNOWN
     Route: 065

REACTIONS (6)
  - Dry skin [Unknown]
  - Frustration tolerance decreased [Unknown]
  - Scab [Unknown]
  - Skin haemorrhage [Unknown]
  - Insomnia [Unknown]
  - Rash [Unknown]
